FAERS Safety Report 6568676-0 (Version None)
Quarter: 2010Q1

REPORT INFORMATION
  Report Type: 
  Country: None (occurrence: None)
  Receive Date: 20100203
  Receipt Date: 20100121
  Transmission Date: 20100710
  Serious: Yes (Other)
  Sender: FDA-Public Use
  Company Number: PHEH2010US01210

PATIENT
  Sex: Male

DRUGS (1)
  1. GLEEVEC [Suspect]
     Indication: MALIGNANT SOFT TISSUE NEOPLASM
     Dosage: 400 MG DAILY
     Route: 048
     Dates: start: 20081101

REACTIONS (3)
  - GASTROINTESTINAL STROMAL TUMOUR [None]
  - SPLENECTOMY [None]
  - TUMOUR EXCISION [None]
